FAERS Safety Report 9674585 (Version 1)
Quarter: 2013Q4

REPORT INFORMATION
  Report Type: Spontaneous
  Country: FR (occurrence: FR)
  Receive Date: 20131107
  Receipt Date: 20131107
  Transmission Date: 20140711
  Serious: Yes (Hospitalization, Other)
  Sender: FDA-Public Use
  Company Number: FR-009507513-1311FRA001011

PATIENT
  Age: 85 Year
  Sex: Male

DRUGS (9)
  1. NASONEX [Suspect]
     Indication: RHINITIS ALLERGIC
     Dosage: UNK
     Route: 045
     Dates: start: 201307, end: 20130716
  2. BILASKA [Suspect]
     Dosage: UNK
     Route: 048
     Dates: start: 201307, end: 20130716
  3. PLAVIX [Concomitant]
     Dosage: 75 MG, QD
  4. CRESTOR [Concomitant]
     Dosage: 5 MG, QD
     Route: 048
  5. LASILIX [Concomitant]
     Dosage: 40 MG, BID
     Route: 048
  6. FORLAX [Concomitant]
     Dosage: 10 G, BID
     Route: 048
  7. LANTUS [Concomitant]
     Dosage: 16 IU, QD
  8. NOVO-NORM [Concomitant]
     Dosage: UNK
     Route: 048
  9. COVERAM [Concomitant]
     Route: 048

REACTIONS (2)
  - Renal failure [Recovered/Resolved]
  - Urinary retention [Recovered/Resolved]
